FAERS Safety Report 26207646 (Version 1)
Quarter: 2025Q4

REPORT INFORMATION
  Report Type: Spontaneous
  Country: US (occurrence: None)
  Receive Date: 20251224
  Receipt Date: 20251224
  Transmission Date: 20260118
  Serious: Yes (Other)
  Sender: FDA-CTU
  Company Number: None

PATIENT
  Age: 30 Year
  Sex: Female
  Weight: 69.75 kg

DRUGS (4)
  1. NEXPLANON [Suspect]
     Active Substance: ETONOGESTREL
     Indication: Contraception
     Route: 058
     Dates: start: 20250423, end: 20251222
  2. VITAMINS [Concomitant]
     Active Substance: VITAMINS
  3. Cash Cow (for milk production) [Concomitant]
  4. Magnesium pills [Concomitant]

REACTIONS (3)
  - Weight decreased [None]
  - Lactation insufficiency [None]
  - Poor feeding infant [None]

NARRATIVE: CASE EVENT DATE: 20250721
